FAERS Safety Report 7889843-X (Version None)
Quarter: 2011Q4

REPORT INFORMATION
  Report Type: 
  Country: None (occurrence: None)
  Receive Date: 20111103
  Receipt Date: 20111031
  Transmission Date: 20120403
  Serious: Yes (Hospitalization)
  Sender: FDA-Public Use
  Company Number: US-GLAXOSMITHKLINE-A0942762A

PATIENT
  Age: 91 Year
  Sex: Female

DRUGS (1)
  1. AVANDIA [Suspect]
     Indication: DIABETES MELLITUS
     Dosage: 4MG PER DAY
     Route: 048
     Dates: start: 20010101, end: 20090301

REACTIONS (6)
  - FAECAL INCONTINENCE [None]
  - CEREBROVASCULAR ACCIDENT [None]
  - HEMIPLEGIA [None]
  - CARDIAC FAILURE [None]
  - DYSPHAGIA [None]
  - URINARY INCONTINENCE [None]
